FAERS Safety Report 9795691 (Version 2)
Quarter: 2014Q1

REPORT INFORMATION
  Report Type: Spontaneous
  Country: US (occurrence: US)
  Receive Date: 20140103
  Receipt Date: 20140114
  Transmission Date: 20141002
  Serious: Yes (Death, Hospitalization, Other)
  Sender: FDA-Public Use
  Company Number: US-009507513-1401USA000375

PATIENT
  Sex: Male
  Weight: 86.17 kg

DRUGS (2)
  1. JANUVIA [Suspect]
     Indication: DIABETES MELLITUS
     Dosage: 100 MG QD
     Route: 048
     Dates: start: 20081028, end: 20091116
  2. JANUVIA [Suspect]
     Dosage: 50 DF, QD

REACTIONS (35)
  - Pancreatic carcinoma [Fatal]
  - Cholecystectomy [Unknown]
  - Arrhythmia [Unknown]
  - Obstruction gastric [Fatal]
  - Coronary artery bypass [Unknown]
  - Bile duct stent insertion [Unknown]
  - Bile duct stent removal [Unknown]
  - Intestinal stent insertion [Unknown]
  - Foot amputation [Unknown]
  - Cardiac pacemaker insertion [Unknown]
  - Myocardial infarction [Unknown]
  - Renal failure chronic [Not Recovered/Not Resolved]
  - Hypoglycaemia [Unknown]
  - Pancreatitis [Unknown]
  - Hypokalaemia [Unknown]
  - Mitral valve incompetence [Unknown]
  - Coronary artery disease [Unknown]
  - Ischaemic cardiomyopathy [Unknown]
  - Hepatomegaly [Unknown]
  - Angioplasty [Unknown]
  - Stent placement [Unknown]
  - Hyperlipidaemia [Unknown]
  - Vision blurred [Unknown]
  - Aortic arteriosclerosis [Unknown]
  - Duodenal sphincterotomy [Unknown]
  - Diabetes mellitus inadequate control [Unknown]
  - Faeces pale [Unknown]
  - Pulmonary vascular disorder [Unknown]
  - Dementia [Unknown]
  - Dyspnoea [Unknown]
  - Blood glucose increased [Unknown]
  - Hypertension [Unknown]
  - Dizziness [Unknown]
  - Pruritus [Unknown]
  - Constipation [Unknown]
